FAERS Safety Report 7244277-6 (Version None)
Quarter: 2011Q1

REPORT INFORMATION
  Report Type: 
  Country: None (occurrence: None)
  Receive Date: 20110125
  Receipt Date: 20110117
  Transmission Date: 20110831
  Serious: Yes (Hospitalization, Other)
  Sender: FDA-Public Use
  Company Number: CA-US-EMD SERONO, INC.-230047J10CAN

PATIENT
  Sex: Female

DRUGS (25)
  1. EPIVAL [Concomitant]
  2. ATIVAN [Concomitant]
  3. RAN-PANTOPRAZOL [Concomitant]
  4. CALUCET [Concomitant]
  5. REBIF [Suspect]
     Dates: start: 20090928
  6. LITHIUM [Suspect]
     Indication: PRODUCT USED FOR UNKNOWN INDICATION
  7. APO-RAMIPRIL [Concomitant]
  8. APO-PROPANOLOL [Concomitant]
  9. AMANTADINE HCL [Concomitant]
  10. REBIF [Suspect]
     Indication: MULTIPLE SCLEROSIS
     Dates: start: 20040122, end: 20090603
  11. SYNTHROID [Concomitant]
  12. CALCIUM GLUCONATE [Concomitant]
  13. APO-DIVALDROEX [APO-DIVALPROEX] [Concomitant]
  14. APO-ATORVASTATIN [Concomitant]
  15. ALEMDRONATE [ALENDRONATE] [Concomitant]
  16. ASAPHEM [Concomitant]
  17. LYRICA [Concomitant]
  18. LITHIUM [Suspect]
  19. RATIO-METFORMIN [Concomitant]
  20. DETRO-LA [Concomitant]
  21. LIPITOR [Concomitant]
  22. LAMOTRIGINE [Concomitant]
  23. APO-TRAZODONE [Concomitant]
  24. AMLODIPINE [Concomitant]
  25. TYLENOL-500 [Concomitant]

REACTIONS (11)
  - DIABETES MELLITUS INADEQUATE CONTROL [None]
  - BLOOD PRESSURE INCREASED [None]
  - CONVULSION [None]
  - LOSS OF CONSCIOUSNESS [None]
  - CONFUSIONAL STATE [None]
  - DIABETES MELLITUS [None]
  - ANAEMIA [None]
  - FATIGUE [None]
  - PANIC ATTACK [None]
  - MUSCULAR WEAKNESS [None]
  - MASS [None]
